FAERS Safety Report 15569635 (Version 1)
Quarter: 2018Q4

REPORT INFORMATION
  Report Type: Spontaneous
  Country: US (occurrence: US)
  Receive Date: 20181031
  Receipt Date: 20181031
  Transmission Date: 20190205
  Serious: Yes (Hospitalization, Other)
  Sender: FDA-Public Use
  Company Number: US-IBIGEN-2018.05061

PATIENT
  Age: 2 Year
  Sex: Female

DRUGS (22)
  1. PHENYTOIN. [Suspect]
     Active Substance: PHENYTOIN
     Indication: FEBRILE INFECTION-RELATED EPILEPSY SYNDROME
     Dosage: ()
  2. TOPIRAMATE. [Concomitant]
     Active Substance: TOPIRAMATE
     Indication: FEBRILE INFECTION-RELATED EPILEPSY SYNDROME
  3. PHENOBARBITAL. [Suspect]
     Active Substance: PHENOBARBITAL
     Indication: FEBRILE INFECTION-RELATED EPILEPSY SYNDROME
     Dosage: ()
  4. FOSPHENYTOIN [Suspect]
     Active Substance: FOSPHENYTOIN
     Indication: FEBRILE INFECTION-RELATED EPILEPSY SYNDROME
     Dosage: ()
  5. CEFOTAXIME [Suspect]
     Active Substance: CEFOTAXIME SODIUM
     Dosage: ()
  6. ANAKINRA [Concomitant]
     Active Substance: ANAKINRA
     Indication: FEBRILE INFECTION-RELATED EPILEPSY SYNDROME
  7. OMEPRAZOLE. [Suspect]
     Active Substance: OMEPRAZOLE
     Dosage: ()
  8. CLONAZEPAM. [Concomitant]
     Active Substance: CLONAZEPAM
     Indication: FEBRILE INFECTION-RELATED EPILEPSY SYNDROME
  9. LEVETIRACETAM. [Concomitant]
     Active Substance: LEVETIRACETAM
     Indication: FEBRILE INFECTION-RELATED EPILEPSY SYNDROME
  10. VALPROIC ACID. [Concomitant]
     Active Substance: VALPROIC ACID
     Indication: FEBRILE INFECTION-RELATED EPILEPSY SYNDROME
  11. LACOSAMIDE. [Suspect]
     Active Substance: LACOSAMIDE
     Indication: FEBRILE INFECTION-RELATED EPILEPSY SYNDROME
     Dosage: ()
  12. LORAZEPAM. [Concomitant]
     Active Substance: LORAZEPAM
     Indication: FEBRILE INFECTION-RELATED EPILEPSY SYNDROME
  13. MIDAZOLAM [Concomitant]
     Active Substance: MIDAZOLAM HYDROCHLORIDE
     Indication: FEBRILE INFECTION-RELATED EPILEPSY SYNDROME
     Dosage: ()AS NECESSARY??????
  14. PRECEDEX [Concomitant]
     Active Substance: DEXMEDETOMIDINE HYDROCHLORIDE
     Indication: FEBRILE INFECTION-RELATED EPILEPSY SYNDROME
  15. CEFTRIAXONE. [Suspect]
     Active Substance: CEFTRIAXONE
     Dosage: ()
  16. UNK [Suspect]
     Active Substance: UNSPECIFIED INGREDIENT
     Dosage: ()
  17. FELBAMATE. [Concomitant]
     Active Substance: FELBAMATE
     Indication: FEBRILE INFECTION-RELATED EPILEPSY SYNDROME
  18. PROPOFOL. [Concomitant]
     Active Substance: PROPOFOL
     Indication: FEBRILE INFECTION-RELATED EPILEPSY SYNDROME
  19. METHYLPREDNISOLONE. [Concomitant]
     Active Substance: METHYLPREDNISOLONE
     Indication: FEBRILE INFECTION-RELATED EPILEPSY SYNDROME
     Dosage: HIGH DOSE ()
  20. PARACETAMOL [Suspect]
     Active Substance: ACETAMINOPHEN
     Dosage: ()
  21. VANCOMYCIN [Suspect]
     Active Substance: VANCOMYCIN
     Dosage: ()
  22. FENTANYL. [Concomitant]
     Active Substance: FENTANYL
     Indication: FEBRILE INFECTION-RELATED EPILEPSY SYNDROME

REACTIONS (6)
  - Laryngeal stenosis [Recovering/Resolving]
  - Tachycardia [Recovering/Resolving]
  - Hepatic function abnormal [Recovering/Resolving]
  - Respiratory acidosis [Recovering/Resolving]
  - Ventricular dysfunction [Recovering/Resolving]
  - Drug reaction with eosinophilia and systemic symptoms [Recovering/Resolving]
